FAERS Safety Report 21819185 (Version 1)
Quarter: 2023Q1

REPORT INFORMATION
  Report Type: Spontaneous
  Country: US (occurrence: US)
  Receive Date: 20230104
  Receipt Date: 20230104
  Transmission Date: 20230417
  Serious: Yes (Other)
  Sender: FDA-Public Use
  Company Number: US-009507513-2301USA000423

PATIENT
  Age: 76 Year
  Sex: Female

DRUGS (2)
  1. KEYTRUDA [Suspect]
     Active Substance: PEMBROLIZUMAB
  2. LENVATINIB MESYLATE [Suspect]
     Active Substance: LENVATINIB MESYLATE
     Indication: Endometrial neoplasm
     Dosage: 8 MILLIGRAM, QD
     Dates: start: 20210401

REACTIONS (5)
  - Radiotherapy [Unknown]
  - Corneal transplant [Unknown]
  - Corneal oedema [Unknown]
  - Cough [Unknown]
  - Iritis [Unknown]

NARRATIVE: CASE EVENT DATE: 20220101
